FAERS Safety Report 5134913-2 (Version None)
Quarter: 2006Q4

REPORT INFORMATION
  Report Type: 
  Country: None (occurrence: None)
  Receive Date: 20061019
  Receipt Date: 20061002
  Transmission Date: 20070319
  Serious: Yes (Other)
  Sender: FDA-Public Use
  Company Number: US200608000149

PATIENT
  Sex: Female
  Weight: 60.8 kg

DRUGS (3)
  1. CYMBALTA [Suspect]
     Indication: DEPRESSION
     Dosage: 30 MG; 60 MG
     Dates: start: 20060701, end: 20060731
  2. CYMBALTA [Suspect]
     Indication: DEPRESSION
     Dosage: 30 MG; 60 MG
     Dates: start: 20060711
  3. TOPROL-XL [Concomitant]

REACTIONS (1)
  - BLOOD PRESSURE INCREASED [None]
